FAERS Safety Report 8961579 (Version 7)
Quarter: 2019Q2

REPORT INFORMATION
  Report Type: Spontaneous
  Country: US (occurrence: US)
  Receive Date: 20121213
  Receipt Date: 20190617
  Transmission Date: 20190711
  Serious: Yes (Hospitalization, Disabling, Other)
  Sender: FDA-Public Use
  Company Number: US-BAYER-2012-128046

PATIENT
  Age: 21 Year
  Sex: Female
  Weight: 87 kg

DRUGS (48)
  1. IBUPROFEN. [Concomitant]
     Active Substance: IBUPROFEN
     Indication: PAIN
     Dosage: UNK UNK, PRN
  2. AMOXICILLIN. [Concomitant]
     Active Substance: AMOXICILLIN
     Dosage: 500 MG, TID
     Route: 048
  3. FENTANYL. [Concomitant]
     Active Substance: FENTANYL
  4. ATIVAN [Concomitant]
     Active Substance: LORAZEPAM
  5. MAGNESIUM SULFATE. [Concomitant]
     Active Substance: MAGNESIUM SULFATE
  6. LACTOBACILLUS NOS [Concomitant]
     Active Substance: LACTOBACILLUS ACIDOPHILUS
  7. FAMOTIDINE. [Concomitant]
     Active Substance: FAMOTIDINE
  8. ZOFRAN [Concomitant]
     Active Substance: ONDANSETRON HYDROCHLORIDE
  9. LASIX [Concomitant]
     Active Substance: FUROSEMIDE
  10. DILANTIN [Concomitant]
     Active Substance: PHENYTOIN
     Indication: SEIZURE
     Dosage: UNK
     Dates: start: 2010
  11. ASCORBIC ACID. [Concomitant]
     Active Substance: ASCORBIC ACID
  12. REGLAN [Concomitant]
     Active Substance: METOCLOPRAMIDE HYDROCHLORIDE
     Indication: IMPAIRED GASTRIC EMPTYING
  13. MIRALAX [Concomitant]
     Active Substance: POLYETHYLENE GLYCOL 3350
  14. LOPRESSOR [Concomitant]
     Active Substance: METOPROLOL TARTRATE
  15. ERYTHROMYCIN. [Concomitant]
     Active Substance: ERYTHROMYCIN
  16. GLUTAMINE [Concomitant]
     Active Substance: GLUTAMINE
  17. EPINEPHRINE. [Concomitant]
     Active Substance: EPINEPHRINE
  18. ATROPINE. [Concomitant]
     Active Substance: ATROPINE
  19. PROMETHAZINE [Concomitant]
     Active Substance: PROMETHAZINE\PROMETHAZINE HYDROCHLORIDE
     Dosage: UNK
     Dates: start: 200810
  20. LEVAQUIN [Concomitant]
     Active Substance: LEVOFLOXACIN
  21. PROCHLORPERAZINE. [Concomitant]
     Active Substance: PROCHLORPERAZINE
  22. PAVULON [Concomitant]
     Active Substance: PANCURONIUM BROMIDE
  23. MEPERIDINE [PETHIDINE] [Concomitant]
     Active Substance: MEPERIDINE
  24. YAZ [Suspect]
     Active Substance: DROSPIRENONE\ETHINYL ESTRADIOL
     Indication: SKIN DISORDER
     Dosage: UNK
     Route: 048
     Dates: start: 20080715, end: 20100128
  25. LIDOCAINE. [Concomitant]
     Active Substance: LIDOCAINE
  26. SINGULAIR [Concomitant]
     Active Substance: MONTELUKAST SODIUM
     Dosage: UNK
     Dates: start: 199812
  27. MEDICIDIN-D [Concomitant]
     Dosage: 1 PACK TID
  28. CHLORPHENIRAMINE MALEATE AND PSEUDOEPHEDRINE HYDROCHLORIDE [Concomitant]
     Active Substance: CHLORPHENIRAMINE MALEATE\PSEUDOEPHEDRINE HYDROCHLORIDE
  29. GENTAMICIN. [Concomitant]
     Active Substance: GENTAMICIN
  30. YAZ [Suspect]
     Active Substance: DROSPIRENONE\ETHINYL ESTRADIOL
     Indication: ACNE
  31. KEPPRA [Concomitant]
     Active Substance: LEVETIRACETAM
  32. DUAC [Concomitant]
     Active Substance: BENZOYL PEROXIDE\CLINDAMYCIN PHOSPHATE
     Indication: ACNE
     Dosage: UNK
     Dates: start: 200901
  33. MIDAZOLAM [Concomitant]
     Active Substance: MIDAZOLAM HYDROCHLORIDE
  34. LORTAB [Concomitant]
     Active Substance: ACETAMINOPHEN\HYDROCODONE BITARTRATE
  35. FOSPHENYTOIN [Concomitant]
     Active Substance: FOSPHENYTOIN
  36. MINOCYCLINE [Concomitant]
     Active Substance: MINOCYCLINE\MINOCYCLINE HYDROCHLORIDE
  37. PHENYTOIN. [Concomitant]
     Active Substance: PHENYTOIN
  38. FLEXON [Concomitant]
     Active Substance: ACETAMINOPHEN\IBUPROFEN
  39. IBUPROFEN. [Concomitant]
     Active Substance: IBUPROFEN
     Indication: INFLAMMATION
  40. TYLENOL [CHLORPHENAMINE MALEATE;DEXTROMETHORPHAN HYDROBROMIDE;PARA [Concomitant]
  41. TOBRAMYCIN. [Concomitant]
     Active Substance: TOBRAMYCIN
  42. PERCOCET [Concomitant]
     Active Substance: ACETAMINOPHEN\OXYCODONE HYDROCHLORIDE
  43. ZOSYN [Concomitant]
     Active Substance: PIPERACILLIN SODIUM\TAZOBACTAM SODIUM
  44. LACOSAMIDE. [Concomitant]
     Active Substance: LACOSAMIDE
     Indication: DEEP VEIN THROMBOSIS
  45. NYSTATIN. [Concomitant]
     Active Substance: NYSTATIN
  46. ALTEPLASE. [Concomitant]
     Active Substance: ALTEPLASE
  47. DESMOPRESSIN [Concomitant]
     Active Substance: DESMOPRESSIN
  48. OMEPRAZOLE. [Concomitant]
     Active Substance: OMEPRAZOLE

REACTIONS (30)
  - Apallic syndrome [None]
  - Thrombophlebitis superficial [Recovered/Resolved]
  - Pulse absent [None]
  - Psychological trauma [None]
  - Deep vein thrombosis [Recovered/Resolved]
  - Product use in unapproved indication [None]
  - Cognitive disorder [None]
  - Bedridden [None]
  - Mobility decreased [None]
  - Respiratory arrest [None]
  - Brain injury [None]
  - Cardiac arrest [None]
  - Gait inability [None]
  - Coma [None]
  - Atrial thrombosis [None]
  - Injury [Recovered/Resolved]
  - Depression [None]
  - Brain hypoxia [None]
  - Cerebrovascular accident [Not Recovered/Not Resolved]
  - Deep vein thrombosis [Recovered/Resolved]
  - Cerebral ischaemia [None]
  - Jugular vein thrombosis [Recovered/Resolved]
  - Pain [Recovered/Resolved]
  - Emotional distress [None]
  - Anxiety [None]
  - Pupillary reflex impaired [None]
  - Pulmonary embolism [Recovered/Resolved]
  - Cerebral thrombosis [None]
  - Unresponsive to stimuli [None]
  - Apnoeic attack [None]

NARRATIVE: CASE EVENT DATE: 2009
